FAERS Safety Report 9075053 (Version 1)
Quarter: 2013Q1

REPORT INFORMATION
  Report Type: Spontaneous
  Country: US (occurrence: US)
  Receive Date: 20130129
  Receipt Date: 20130129
  Transmission Date: 20140127
  Serious: No
  Sender: FDA-Public Use
  Company Number: US-BAUSCH-2012BL004166

PATIENT
  Age: 94 Year
  Sex: Male

DRUGS (3)
  1. ZYLET (LOTEPREDNOL ETABONATE 0.5% AND TOBRAMYCIN 0.3% OPHTHALMIC SUSPE [Suspect]
     Indication: EYE INFECTION
     Dosage: 1 DROP; 4 TIMES A DAY; OPHTHALMIC
     Route: 047
     Dates: start: 201205
  2. TIMOLOL MALEATE [Concomitant]
     Indication: GLAUCOMA
     Route: 047
     Dates: start: 2012
  3. LATANOPROST [Concomitant]
     Indication: GLAUCOMA
     Route: 047
     Dates: start: 2002

REACTIONS (1)
  - Vision blurred [Not Recovered/Not Resolved]
